FAERS Safety Report 13909799 (Version 1)
Quarter: 2017Q3

REPORT INFORMATION
  Report Type: Spontaneous
  Country: US (occurrence: US)
  Receive Date: 20170828
  Receipt Date: 20170828
  Transmission Date: 20171127
  Serious: Yes (Death, Other)
  Sender: FDA-Public Use
  Company Number: US-NAPPMUNDI-USA-2017-0140470

PATIENT
  Age: 16 Month
  Sex: Male

DRUGS (1)
  1. OXYCODONE HYDROCHLORIDE (SIMILAR TO NDA 22-272) [Suspect]
     Active Substance: OXYCODONE HYDROCHLORIDE
     Indication: ACCIDENTAL EXPOSURE TO PRODUCT BY CHILD
     Dosage: UNK
     Route: 048

REACTIONS (7)
  - Overdose [Fatal]
  - Somnolence [Unknown]
  - Unevaluable event [Unknown]
  - Vomiting [Unknown]
  - Unresponsive to stimuli [Not Recovered/Not Resolved]
  - Accidental exposure to product by child [Unknown]
  - Malaise [Unknown]
